FAERS Safety Report 18006338 (Version 3)
Quarter: 2020Q4

REPORT INFORMATION
  Report Type: Spontaneous
  Country: JP (occurrence: JP)
  Receive Date: 20200710
  Receipt Date: 20201118
  Transmission Date: 20210113
  Serious: Yes (Hospitalization, Other)
  Sender: FDA-Public Use
  Company Number: JP-TAKEDA-2020TUS029878

PATIENT
  Age: 59 Year
  Sex: Male

DRUGS (14)
  1. LOXOPROFEN                         /00890702/ [Concomitant]
     Active Substance: LOXOPROFEN
     Indication: CANCER PAIN
     Dosage: 60 MILLIGRAM, TID
     Route: 048
  2. NORVASC [Concomitant]
     Active Substance: AMLODIPINE BESYLATE
     Indication: HYPERTENSION
     Dosage: 10 MILLIGRAM, QD
     Route: 048
  3. MAGNESIUM OXIDE. [Concomitant]
     Active Substance: MAGNESIUM OXIDE
     Indication: CONSTIPATION
     Dosage: 660 MILLIGRAM, TID
     Route: 048
  4. AFINITOR [Suspect]
     Active Substance: EVEROLIMUS
     Dosage: 2.5 MILLIGRAM, QD
     Route: 048
     Dates: start: 20191102, end: 20191129
  5. FEBURIC [Suspect]
     Active Substance: FEBUXOSTAT
     Indication: PRODUCT USED FOR UNKNOWN INDICATION
     Dosage: 20 MILLIGRAM, QD
     Route: 048
  6. AFINITOR [Suspect]
     Active Substance: EVEROLIMUS
     Indication: GASTROENTEROPANCREATIC NEUROENDOCRINE TUMOUR DISEASE
     Dosage: 2.5 MILLIGRAM, QD
     Route: 048
     Dates: start: 20180814, end: 20190611
  7. XARELTO [Concomitant]
     Active Substance: RIVAROXABAN
     Indication: TUMOUR EMBOLISM
     Dosage: 10 MILLIGRAM, QD
     Route: 048
  8. ALOSENN [ACHILLEA MILLEFOLIUM;RUBIA TINCTORUM ROOT TINCTURE;SENNA ALEX [Concomitant]
     Active Substance: ACHILLEA MILLEFOLIUM\RUBIA TINCTURE\SENNA FRUIT EXTRACT\SENNA LEAF\TARAXACUM OFFICINALE
     Dosage: 0.5 GRAM, QD
     Dates: start: 20191220, end: 20200117
  9. SOMATULINE [LANREOTIDE] [Suspect]
     Active Substance: LANREOTIDE
     Indication: GASTROENTEROPANCREATIC NEUROENDOCRINE TUMOUR DISEASE
     Dosage: 120 MILLIGRAM, Q4WEEKS
     Route: 058
     Dates: start: 20190507, end: 20191129
  10. OXYCONTIN [Suspect]
     Active Substance: OXYCODONE HYDROCHLORIDE
     Indication: CANCER PAIN
     Dosage: 5 MILLIGRAM, QD
     Route: 048
  11. SYMPROIC [Concomitant]
     Active Substance: NALDEMEDINE
     Indication: CONSTIPATION PROPHYLAXIS
     Dosage: 0.2 MILLIGRAM, QD
     Route: 048
     Dates: start: 20191215, end: 20200410
  12. AFINITOR [Suspect]
     Active Substance: EVEROLIMUS
     Dosage: 2.5 MILLIGRAM, QD
     Route: 048
     Dates: start: 20190625, end: 20191022
  13. AFINITOR [Suspect]
     Active Substance: EVEROLIMUS
     Dosage: 2.5 MILLIGRAM, QD
     Route: 048
     Dates: start: 20200214, end: 20200424
  14. KAYEXALATE [Concomitant]
     Active Substance: SODIUM POLYSTYRENE SULFONATE
     Indication: HYPERKALAEMIA
     Dosage: 5 GRAM, TID
     Route: 048

REACTIONS (4)
  - Interstitial lung disease [Recovered/Resolved]
  - Dyspnoea [Recovering/Resolving]
  - Constipation [Recovered/Resolved]
  - Hyperglycaemia [Recovering/Resolving]

NARRATIVE: CASE EVENT DATE: 20190611
